FAERS Safety Report 16497596 (Version 1)
Quarter: 2019Q2

REPORT INFORMATION
  Report Type: Spontaneous
  Country: US (occurrence: US)
  Receive Date: 20190628
  Receipt Date: 20190628
  Transmission Date: 20190711
  Serious: No
  Sender: FDA-Public Use
  Company Number: US-JNJFOC-20190621648

PATIENT
  Sex: Female
  Weight: 56.75 kg

DRUGS (1)
  1. DURAGESIC [Suspect]
     Active Substance: FENTANYL
     Indication: ARTHRALGIA
     Route: 062
     Dates: start: 201807

REACTIONS (4)
  - Nausea [Not Recovered/Not Resolved]
  - Drug ineffective [Unknown]
  - Hypertension [Not Recovered/Not Resolved]
  - Withdrawal syndrome [Not Recovered/Not Resolved]
